FAERS Safety Report 9831503 (Version 1)
Quarter: 2014Q1

REPORT INFORMATION
  Report Type: Spontaneous
  Country: FR (occurrence: FR)
  Receive Date: 20140121
  Receipt Date: 20140121
  Transmission Date: 20141002
  Serious: Yes (Hospitalization, Other)
  Sender: FDA-Public Use
  Company Number: FR-JNJFOC-20140107159

PATIENT
  Age: 70 Year
  Sex: Male

DRUGS (3)
  1. XARELTO [Suspect]
     Indication: SUPRAVENTRICULAR EXTRASYSTOLES
     Route: 048
     Dates: start: 201306, end: 20131025
  2. SOTALOL HYDROCHLORIDE [Concomitant]
     Route: 048
  3. CARTEOL [Concomitant]
     Route: 047

REACTIONS (2)
  - Gastrointestinal haemorrhage [Recovered/Resolved]
  - Malaise [Recovered/Resolved]
